FAERS Safety Report 4931352-1 (Version None)
Quarter: 2006Q1

REPORT INFORMATION
  Report Type: 
  Country: None (occurrence: None)
  Receive Date: 20060228
  Receipt Date: 20060215
  Transmission Date: 20060701
  Serious: Yes (Hospitalization)
  Sender: FDA-Public Use
  Company Number: 2006019855

PATIENT
  Age: 31 Year
  Sex: Male

DRUGS (8)
  1. SOLU-CORTEF [Suspect]
     Indication: PAIN
     Dosage: 300 MG (300 MG, 1 IN 1 D), INTRAVENOUS
     Route: 042
     Dates: start: 20040822, end: 20040822
  2. SOLU-CORTEF [Suspect]
     Indication: PYREXIA
     Dosage: 300 MG (300 MG, 1 IN 1 D), INTRAVENOUS
     Route: 042
     Dates: start: 20040822, end: 20040822
  3. ROCEPHIN [Suspect]
     Indication: ACUTE TONSILLITIS
     Dosage: 2 GRAM (2 GRAM, 1 IN 1 D), INTRAVENOUS
     Route: 042
     Dates: start: 20040822, end: 20040822
  4. ROCEPHIN [Suspect]
     Indication: BACTERIAL INFECTION
     Dosage: 2 GRAM (2 GRAM, 1 IN 1 D), INTRAVENOUS
     Route: 042
     Dates: start: 20040822, end: 20040822
  5. LEVOFLOXACIN [Concomitant]
  6. MUCOSOLVAN (AMBROXOL HYDROCHLORIDE) [Concomitant]
  7. MUCOSTA (REBAMIPIDE) [Concomitant]
  8. MUCODYNE (CARBOCISTEINE) [Concomitant]

REACTIONS (2)
  - ANGIONEUROTIC OEDEMA [None]
  - DRUG HYPERSENSITIVITY [None]
